FAERS Safety Report 5574031-2 (Version None)
Quarter: 2007Q4

REPORT INFORMATION
  Report Type: 
  Country: None (occurrence: None)
  Receive Date: 20071221
  Receipt Date: 20071212
  Transmission Date: 20080405
  Serious: Yes (Hospitalization)
  Sender: FDA-Public Use
  Company Number: 2007BI026311

PATIENT
  Age: 33 Year
  Sex: Male

DRUGS (1)
  1. NATALIZUMAB                     (NATALIZUMAB) [Suspect]
     Indication: MULTIPLE SCLEROSIS

REACTIONS (3)
  - ALCOHOL POISONING [None]
  - COMA [None]
  - FOREIGN BODY ASPIRATION [None]
